FAERS Safety Report 5755246-7 (Version None)
Quarter: 2008Q2

REPORT INFORMATION
  Report Type: 
  Country: None (occurrence: None)
  Receive Date: 20080528
  Receipt Date: 20080516
  Transmission Date: 20081010
  Serious: Yes (Hospitalization)
  Sender: FDA-Public Use
  Company Number: 028-C5013-08021612

PATIENT
  Age: 65 Year
  Sex: Male
  Weight: 68 kg

DRUGS (7)
  1. CC-5013 (LENALIDOMIDE) (CAPSULES) [Suspect]
     Indication: NON-HODGKIN'S LYMPHOMA
     Dosage: 25 MG, OD X 21 DAYS 28 DAYS,ORAL, 25 MG, DAILY X 21 DAYS, ORAL
     Route: 048
     Dates: start: 20080103
  2. CC-5013 (LENALIDOMIDE) (CAPSULES) [Suspect]
     Indication: NON-HODGKIN'S LYMPHOMA
     Dosage: 25 MG, OD X 21 DAYS 28 DAYS,ORAL, 25 MG, DAILY X 21 DAYS, ORAL
     Route: 048
     Dates: start: 20080319
  3. COLACE (DOCUSATE SODIUM) (100 MILLIGRAM, CAPSULES) [Concomitant]
  4. TYLENOL #3 (PANADEINE CO) (TABLETS) [Concomitant]
  5. ANUSOL-HC (ANUSOL-HC) (OINTMENT) [Concomitant]
  6. LOSEC (OMEPRAZOLE) (20 MILLIGRAM, CAPSULES) [Concomitant]
  7. SEPTRA [Concomitant]

REACTIONS (11)
  - ABDOMINAL TENDERNESS [None]
  - CONSTIPATION [None]
  - DECREASED APPETITE [None]
  - GALLBLADDER POLYP [None]
  - HAEMANGIOMA [None]
  - HYPERPLASTIC CHOLECYSTOPATHY [None]
  - ILEUS [None]
  - NEPHROLITHIASIS [None]
  - PYREXIA [None]
  - SMALL INTESTINAL OBSTRUCTION [None]
  - WEIGHT DECREASED [None]
